FAERS Safety Report 7906401-9 (Version None)
Quarter: 2011Q4

REPORT INFORMATION
  Report Type: 
  Country: None (occurrence: None)
  Receive Date: 20111110
  Receipt Date: 20111108
  Transmission Date: 20120403
  Serious: Yes (Hospitalization)
  Sender: FDA-Public Use
  Company Number: AU-PFIZER INC-2011274763

PATIENT
  Sex: Male

DRUGS (3)
  1. EFFEXOR XR [Suspect]
     Indication: DEPRESSION
     Dosage: 150 MG, UNK
  2. EFFEXOR XR [Suspect]
     Dosage: 75 MG DAILY
  3. EFFEXOR XR [Suspect]
     Dosage: 37.5 MG, UNK

REACTIONS (6)
  - CHEST PAIN [None]
  - HEADACHE [None]
  - MOTOR DYSFUNCTION [None]
  - DRUG WITHDRAWAL SYNDROME [None]
  - PARAESTHESIA [None]
  - MOOD SWINGS [None]
